FAERS Safety Report 9929283 (Version 2)
Quarter: 2014Q1

REPORT INFORMATION
  Report Type: Spontaneous
  Country: PT (occurrence: None)
  Receive Date: 20140221
  Receipt Date: 20140304
  Transmission Date: 20141002
  Serious: Yes (Disabling, Other)
  Sender: FDA-Public Use
  Company Number: SYM-2014-17401

PATIENT
  Age: 65 Year
  Sex: Male

DRUGS (6)
  1. FLAGYL [Suspect]
     Indication: GASTROINTESTINAL DISORDER
     Route: 048
     Dates: start: 20131104, end: 20131109
  2. CRESTOR (ROSUVASTATIN CALCIUM) [Concomitant]
  3. HYDROCHLOROTHIAZIDE / IRBESARTAN (KARVEA HCT) (HYDROCHLOROTHIAZIDE, IRBESARTAN) [Concomitant]
  4. NEBIVOLOL (NEBIVOLOL) (NEBIVOLOL) [Concomitant]
  5. ASPIRINA / ACETYLSALICYLIC ACID) (ACETYLSALICYLIC ACID) [Concomitant]
  6. ANTIBIOTICS (ANTIBIOTICS) [Concomitant]

REACTIONS (2)
  - Coordination abnormal [None]
  - Muscular weakness [None]
